FAERS Safety Report 18342461 (Version 2)
Quarter: 2021Q2

REPORT INFORMATION
  Report Type: Other
  Country: MX (occurrence: MX)
  Receive Date: 20201005
  Receipt Date: 20210625
  Transmission Date: 20210717
  Serious: Yes (Disabling)
  Sender: FDA-Public Use
  Company Number: MX-ROCHE-2688920

PATIENT
  Sex: Male

DRUGS (1)
  1. ROACTEMRA [Suspect]
     Active Substance: TOCILIZUMAB
     Indication: RHEUMATOID ARTHRITIS
     Route: 042
     Dates: start: 20200930

REACTIONS (2)
  - Ear disorder [Not Recovered/Not Resolved]
  - Hypoacusis [Not Recovered/Not Resolved]
